FAERS Safety Report 8107197-0 (Version None)
Quarter: 2012Q1

REPORT INFORMATION
  Report Type: 
  Country: None (occurrence: None)
  Receive Date: 20120202
  Receipt Date: 20120120
  Transmission Date: 20120608
  Serious: Yes (Death)
  Sender: FDA-Public Use
  Company Number: US-ELI_LILLY_AND_COMPANY-US201201006359

PATIENT
  Sex: Female

DRUGS (13)
  1. HYDROCODONE BITARTRATE [Concomitant]
  2. LEVOTHYROXINE SODIUM [Concomitant]
  3. MIRAPEX [Concomitant]
  4. FORTEO [Suspect]
     Indication: OSTEOPOROSIS
     Dosage: 20 UG, QD
     Dates: end: 20111115
  5. SENNA [Concomitant]
  6. MIRALAX [Concomitant]
  7. TRIAMTERENE [Concomitant]
  8. CARISOPRODOL [Concomitant]
  9. RANITIDINE [Concomitant]
  10. MORPHINE [Concomitant]
     Indication: PAIN
  11. MIACALCIN [Concomitant]
  12. ARICEPT [Concomitant]
  13. LIDODERM [Concomitant]

REACTIONS (6)
  - PAIN [None]
  - PNEUMONIA [None]
  - CONFUSIONAL STATE [None]
  - GASTROINTESTINAL DISORDER [None]
  - DRUG INEFFECTIVE [None]
  - VASCULAR DEMENTIA [None]
